FAERS Safety Report 25684950 (Version 3)
Quarter: 2025Q3

REPORT INFORMATION
  Report Type: Report from Study
  Country: US (occurrence: US)
  Receive Date: 20250815
  Receipt Date: 20250927
  Transmission Date: 20251021
  Serious: Yes (Other)
  Sender: ABBVIE
  Company Number: US-ABBVIE-6383530

PATIENT
  Age: 49 Year
  Sex: Female

DRUGS (2)
  1. RINVOQ [Suspect]
     Active Substance: UPADACITINIB
     Indication: Rheumatoid arthritis
     Route: 048
     Dates: start: 20250608
  2. RINVOQ [Suspect]
     Active Substance: UPADACITINIB
     Indication: Rheumatoid arthritis
     Route: 048
     Dates: start: 20250620

REACTIONS (10)
  - Gangrene [Not Recovered/Not Resolved]
  - Animal bite [Not Recovered/Not Resolved]
  - Contusion [Unknown]
  - Skin wound [Recovering/Resolving]
  - Haematoma [Unknown]
  - Illness [Unknown]
  - Pain [Not Recovered/Not Resolved]
  - Pharyngitis streptococcal [Unknown]
  - Animal bite [Recovered/Resolved]
  - Skin discolouration [Not Recovered/Not Resolved]

NARRATIVE: CASE EVENT DATE: 20250101
